FAERS Safety Report 17961908 (Version 1)
Quarter: 2020Q2

REPORT INFORMATION
  Report Type: Spontaneous
  Country: US (occurrence: US)
  Receive Date: 20200629
  Receipt Date: 20200629
  Transmission Date: 20200714
  Serious: No
  Sender: FDA-Public Use
  Company Number: None

PATIENT
  Age: 60 Year
  Sex: Male

DRUGS (1)
  1. ALOGLIPTIN (ALOGLIPTIN 25MG TAB) [Suspect]
     Active Substance: ALOGLIPTIN
     Indication: DIABETES MELLITUS
     Dosage: ?          OTHER DOSE:12.5;?
     Dates: start: 20190529, end: 20200212

REACTIONS (2)
  - Pancreatitis [None]
  - Hepatic enzyme increased [None]

NARRATIVE: CASE EVENT DATE: 20200212
